FAERS Safety Report 20823622 (Version 1)
Quarter: 2022Q2

REPORT INFORMATION
  Report Type: Spontaneous
  Country: CA (occurrence: CA)
  Receive Date: 20220513
  Receipt Date: 20220513
  Transmission Date: 20220721
  Serious: Yes (Other)
  Sender: FDA-Public Use
  Company Number: CA-TEVA-2022-CA-2035521

PATIENT
  Sex: Female

DRUGS (3)
  1. HYDROMORPHONE HYDROCHLORIDE [Suspect]
     Active Substance: HYDROMORPHONE HYDROCHLORIDE
     Indication: Product used for unknown indication
     Route: 048
  2. ACETAMINOPHEN\OXYCODONE HYDROCHLORIDE\OXYCODONE TEREPHTHALATE [Suspect]
     Active Substance: ACETAMINOPHEN\OXYCODONE HYDROCHLORIDE\OXYCODONE TEREPHTHALATE
     Indication: Product used for unknown indication
     Route: 065
  3. OXYCONTIN [Suspect]
     Active Substance: OXYCODONE HYDROCHLORIDE
     Indication: Product used for unknown indication
     Route: 048

REACTIONS (13)
  - Acne [Unknown]
  - Anxiety [Unknown]
  - Decreased appetite [Unknown]
  - Drug dependence [Unknown]
  - Feeling abnormal [Unknown]
  - General physical health deterioration [Unknown]
  - Hypoaesthesia [Unknown]
  - Illness [Unknown]
  - Libido decreased [Unknown]
  - Liver disorder [Unknown]
  - Nausea [Unknown]
  - Pain [Unknown]
  - Pancreatic duct dilatation [Unknown]
